FAERS Safety Report 5153921-9 (Version None)
Quarter: 2006Q4

REPORT INFORMATION
  Report Type: 
  Country: None (occurrence: None)
  Receive Date: 20061120
  Receipt Date: 20061017
  Transmission Date: 20070319
  Serious: Yes (Other)
  Sender: FDA-Public Use
  Company Number: PHBS2006BR16238

PATIENT
  Age: 56 Year
  Sex: Female
  Weight: 86 kg

DRUGS (7)
  1. HERCEPTIN [Concomitant]
     Indication: BREAST CANCER METASTATIC
  2. NAVELBINE [Concomitant]
     Indication: BREAST CANCER METASTATIC
  3. TAXOTERE [Concomitant]
     Indication: BREAST CANCER METASTATIC
  4. TAXOL [Concomitant]
     Indication: BREAST CANCER METASTATIC
  5. CARBOPLATIN [Concomitant]
     Indication: BREAST CANCER METASTATIC
  6. GEMZAR [Concomitant]
     Indication: BREAST CANCER METASTATIC
  7. ZOMETA [Suspect]
     Indication: METASTASES TO BONE
     Dosage: 1 DF, EVERY 4 WEEKS
     Route: 042
     Dates: start: 19990129, end: 20060613

REACTIONS (2)
  - BONE DEBRIDEMENT [None]
  - OSTEONECROSIS [None]
